FAERS Safety Report 15135670 (Version 1)
Quarter: 2018Q3

REPORT INFORMATION
  Report Type: Spontaneous
  Country: GB (occurrence: ES)
  Receive Date: 20180712
  Receipt Date: 20180712
  Transmission Date: 20181010
  Serious: Yes (Life-Threatening)
  Sender: FDA-Public Use
  Company Number: ES-FRESENIUS KABI-FK201807713

PATIENT
  Age: 71 Year
  Sex: Female

DRUGS (6)
  1. PIPERACILLIN/TAZOBACTAM (MANUFACTURER UNKNOWN) [Interacting]
     Active Substance: PIPERACILLIN SODIUM\TAZOBACTAM SODIUM
     Indication: PNEUMONIA
     Dosage: 4 G C/8H
     Route: 042
     Dates: start: 20170202, end: 20170214
  2. CLEXANE 40 MG JERINGA PRECARGADA [Concomitant]
     Dosage: 40 MG C/24H
     Route: 058
     Dates: start: 20170202, end: 20170327
  3. MEROPENEM (MANUFACTURER UNKNOWN) [Interacting]
     Active Substance: MEROPENEM
     Indication: PNEUMONIA
     Dosage: 2 G C/8H
     Route: 042
     Dates: start: 20170216, end: 20170306
  4. IPRATROPIO BROMURO 500 MCG AMPOLLA NEBULIZADA [Concomitant]
     Indication: PNEUMONIA
     Dosage: 500 MCG C/8HG
     Route: 055
     Dates: start: 20170202, end: 20170327
  5. LINEZOLID KABI [Suspect]
     Active Substance: LINEZOLID
     Indication: PNEUMONIA
     Dosage: 600 MG C/12H
     Route: 042
     Dates: start: 20170214, end: 20170217
  6. SALBUAIR 2,5 MG AMPOLLA PARA INHALACION [Concomitant]
     Indication: PNEUMONIA
     Dosage: 2.5 MG C/8H
     Route: 055
     Dates: start: 20170202, end: 20170227

REACTIONS (4)
  - Relapsing fever [Recovered/Resolved with Sequelae]
  - Dyspnoea [Recovered/Resolved with Sequelae]
  - Leukopenia [Recovered/Resolved with Sequelae]
  - Drug interaction [Unknown]

NARRATIVE: CASE EVENT DATE: 20170217
